FAERS Safety Report 4986058-X (Version None)
Quarter: 2006Q2

REPORT INFORMATION
  Report Type: 
  Country: None (occurrence: None)
  Receive Date: 20060428
  Receipt Date: 20051129
  Transmission Date: 20061013
  Serious: Yes (Life-Threatening, Hospitalization, Other)
  Sender: FDA-Public Use
  Company Number: DE-ABBOTT-05P-062-0318288-00

PATIENT
  Age: 68 Year
  Sex: Female
  Weight: 68 kg

DRUGS (20)
  1. ZEMPLAR [Suspect]
     Indication: HYPERPARATHYROIDISM SECONDARY
     Route: 042
     Dates: start: 20050610, end: 20050610
  2. ZEMPLAR [Suspect]
     Route: 042
     Dates: start: 20050613, end: 20051016
  3. ZEMPLAR [Suspect]
     Route: 042
     Dates: start: 20051017
  4. SEVELAMER HYDROCHLORIDE [Concomitant]
     Indication: HYPERPARATHYROIDISM SECONDARY
     Route: 048
     Dates: start: 20020514, end: 20051106
  5. SEVELAMER HYDROCHLORIDE [Concomitant]
     Route: 048
     Dates: start: 20051107
  6. ALUMINIUM HYDROXIDE GEL [Concomitant]
     Indication: HYPERPARATHYROIDISM SECONDARY
     Route: 048
     Dates: start: 20030417
  7. COLECALCIFEROL [Concomitant]
     Indication: HYPERPARATHYROIDISM SECONDARY
     Dosage: 1 CAPSULE= 20,000 IE
     Route: 048
  8. DREISAVIT N [Concomitant]
     Indication: DRUG USE FOR UNKNOWN INDICATION
     Route: 048
     Dates: start: 19980525
  9. ACETYLSALICYLIC ACID SRT [Concomitant]
     Indication: DRUG USE FOR UNKNOWN INDICATION
     Route: 048
     Dates: start: 20000311
  10. OLANZAPINE [Concomitant]
     Indication: DRUG USE FOR UNKNOWN INDICATION
     Route: 048
     Dates: start: 20021126, end: 20051028
  11. OLANZAPINE [Concomitant]
     Route: 048
     Dates: start: 20051029
  12. ENALAPRIL MALEATE [Concomitant]
     Indication: DRUG USE FOR UNKNOWN INDICATION
     Dosage: 1/2 A 5 MG TABLET
     Route: 048
     Dates: start: 20031111, end: 20051017
  13. BICANORM [Concomitant]
     Indication: DRUG USE FOR UNKNOWN INDICATION
     Route: 048
     Dates: start: 20040614, end: 20051106
  14. BICANORM [Concomitant]
     Route: 048
     Dates: start: 20051107
  15. VERAPAMIL [Concomitant]
     Indication: DRUG USE FOR UNKNOWN INDICATION
     Dosage: 1/2 80 MG TABLET
     Route: 048
     Dates: start: 20050404, end: 20051017
  16. OMEPRAZOLE [Concomitant]
     Indication: DRUG USE FOR UNKNOWN INDICATION
     Route: 048
     Dates: start: 20050808
  17. CLOMETHIAZOLE EDISILATE [Concomitant]
     Indication: DRUG USE FOR UNKNOWN INDICATION
     Route: 048
     Dates: start: 20050808, end: 20051017
  18. DIGITOXIN TAB [Concomitant]
     Indication: DRUG USE FOR UNKNOWN INDICATION
     Route: 048
     Dates: start: 20051017
  19. OLANZAPINE [Concomitant]
  20. VENLAFAXINE HCL [Concomitant]
     Indication: DRUG USE FOR UNKNOWN INDICATION
     Route: 048
     Dates: start: 20051029

REACTIONS (14)
  - ANXIETY [None]
  - AORTIC VALVE INCOMPETENCE [None]
  - AORTIC VALVE STENOSIS [None]
  - BLOOD CREATININE INCREASED [None]
  - CHILLS [None]
  - CONVULSION [None]
  - ENDOCARDITIS [None]
  - HAEMOGLOBIN DECREASED [None]
  - HYPOTENSION [None]
  - NAUSEA [None]
  - PYREXIA [None]
  - STAPHYLOCOCCAL INFECTION [None]
  - TRICUSPID VALVE INCOMPETENCE [None]
  - VOMITING [None]
